FAERS Safety Report 9395890 (Version 2)
Quarter: 2013Q3

REPORT INFORMATION
  Report Type: Spontaneous
  Country: IT (occurrence: IT)
  Receive Date: 20130711
  Receipt Date: 20130807
  Transmission Date: 20140515
  Serious: Yes (Hospitalization)
  Sender: FDA-Public Use
  Company Number: IT-BRISTOL-MYERS SQUIBB COMPANY-19082551

PATIENT
  Age: 88 Year
  Sex: Female

DRUGS (6)
  1. COUMADIN TABS 5 MG [Suspect]
     Indication: HYPERTENSIVE HEART DISEASE
     Dosage: 1DF: 1UNIT?INTERRUPTED ON 10JUN2013
     Route: 048
     Dates: start: 20130316
  2. TRIATEC [Concomitant]
     Dosage: 1DF: 1UNIT?5 MG TAB
     Route: 048
  3. KANRENOL [Concomitant]
     Dosage: 25 MG TAB?1DF: 1UNIT
     Route: 048
  4. PAROXETINE [Concomitant]
     Dosage: 10 MG/ML ORAL DROPS SOLUTION
     Route: 048
  5. SEQUACOR [Concomitant]
     Dosage: TABS
  6. PEPTAZOL [Concomitant]
     Dosage: TABS

REACTIONS (2)
  - Hepatitis cholestatic [Unknown]
  - Jaundice [Unknown]
